FAERS Safety Report 7716938-3 (Version None)
Quarter: 2011Q3

REPORT INFORMATION
  Report Type: 
  Country: None (occurrence: None)
  Receive Date: 20110829
  Receipt Date: 20110819
  Transmission Date: 20111222
  Serious: Yes (Other)
  Sender: FDA-Public Use
  Company Number: US-ASTRAZENECA-2011SE50248

PATIENT
  Age: 53 Year
  Weight: 83.5 kg

DRUGS (4)
  1. METOPROLOL [Concomitant]
     Indication: BLOOD PRESSURE ABNORMAL
     Route: 048
     Dates: start: 20110501
  2. METFORMIN HYDROCHLORIDE [Concomitant]
     Indication: DIABETES MELLITUS
     Route: 048
     Dates: start: 20090101
  3. CRESTOR [Suspect]
     Indication: OBSTRUCTION
     Route: 048
     Dates: start: 20110819
  4. MULTAQ [Concomitant]
     Indication: CARDIAC DISORDER
     Route: 048
     Dates: start: 20110501

REACTIONS (1)
  - CAROTID ARTERY THROMBOSIS [None]
